FAERS Safety Report 25384594 (Version 2)
Quarter: 2025Q2

REPORT INFORMATION
  Report Type: Spontaneous
  Country: US (occurrence: US)
  Receive Date: 20250602
  Receipt Date: 20250620
  Transmission Date: 20250717
  Serious: No
  Sender: LEO PHARM
  Company Number: US-LEO Pharma-380234

PATIENT
  Age: 18 Year
  Sex: Female

DRUGS (1)
  1. ADBRY [Suspect]
     Active Substance: TRALOKINUMAB-LDRM
     Indication: Dermatitis atopic
     Dates: start: 202504

REACTIONS (2)
  - Erythema [Unknown]
  - Pruritus [Unknown]

NARRATIVE: CASE EVENT DATE: 20250527
